FAERS Safety Report 5718091-4 (Version None)
Quarter: 2008Q2

REPORT INFORMATION
  Report Type: 
  Country: None (occurrence: None)
  Receive Date: 20080425
  Receipt Date: 20080416
  Transmission Date: 20081010
  Serious: Yes (Hospitalization)
  Sender: FDA-Public Use
  Company Number: US-MERCK-0804USA00165

PATIENT
  Age: 17 Year
  Sex: Male

DRUGS (3)
  1. SINGULAIR [Suspect]
     Indication: HYPERSENSITIVITY
     Route: 048
     Dates: end: 20080328
  2. CLARITIN [Concomitant]
     Route: 065
  3. ADVAIR HFA [Concomitant]
     Route: 065

REACTIONS (2)
  - INTENTIONAL OVERDOSE [None]
  - SUICIDE ATTEMPT [None]
